FAERS Safety Report 10435206 (Version 2)
Quarter: 2014Q3

REPORT INFORMATION
  Report Type: Report from Study
  Country: JP (occurrence: JP)
  Receive Date: 20140907
  Receipt Date: 20140907
  Transmission Date: 20150326
  Serious: Yes (Death, Other)
  Sender: FDA-Public Use
  Company Number: PHHY2010JP56552

PATIENT
  Age: 68 Year
  Sex: Male

DRUGS (29)
  1. AFINITOR [Suspect]
     Active Substance: EVEROLIMUS
     Dosage: 10 MG DAILY
     Route: 048
     Dates: start: 20100721, end: 20100809
  2. PURSENNID [Concomitant]
     Active Substance: SENNOSIDES A AND B CALCIUM
     Dosage: 24 MG, UNK
     Route: 048
     Dates: start: 20100526
  3. SUNITINIB MALATE [Concomitant]
     Active Substance: SUNITINIB MALATE
     Indication: METASTATIC RENAL CELL CARCINOMA
     Dosage: 50 MG, UNK
     Route: 048
     Dates: start: 20081105, end: 20100517
  4. NEXAVAR [Concomitant]
     Active Substance: SORAFENIB
     Indication: METASTATIC RENAL CELL CARCINOMA
     Dosage: 800 MG, UNK
     Route: 048
     Dates: start: 20080421, end: 20081102
  5. THYRADIN S [Concomitant]
     Active Substance: LEVOTHYROXINE SODIUM
     Dosage: 200 UG, UNK
     Route: 048
     Dates: start: 20100522
  6. RINDERON V [Concomitant]
     Active Substance: BETAMETHASONE VALERATE
     Dosage: UNK
     Route: 048
     Dates: start: 20100825
  7. BISOLVON [Concomitant]
     Active Substance: BROMHEXINE HYDROCHLORIDE
     Dosage: UNK
     Route: 055
  8. LAMISIL [Concomitant]
     Active Substance: TERBINAFINE HYDROCHLORIDE
     Dosage: UNK
     Dates: start: 20100930, end: 20101007
  9. URSO [Concomitant]
     Active Substance: URSODIOL
     Dosage: 300 MG, UNK
     Route: 048
     Dates: start: 20100522, end: 20100713
  10. APHTASOLON [Concomitant]
     Dosage: 0.5 G, UNK
     Dates: start: 20100728
  11. ADONA [Concomitant]
     Active Substance: CARBAZOCHROME SODIUM SULFONATE
     Dosage: 90 MG, UNK
     Dates: start: 20100626
  12. VITAMEDIN [Concomitant]
     Active Substance: CYANOCOBALAMIN\PYRIDOXINE HYDROCHLORIDE\THIAMINE
     Dosage: 75 MG, UNK
     Route: 048
     Dates: start: 20100828, end: 20100920
  13. AFINITOR [Suspect]
     Active Substance: EVEROLIMUS
     Indication: METASTATIC RENAL CELL CARCINOMA
     Dosage: 10 MG DAILY
     Route: 048
     Dates: start: 20100522, end: 20100603
  14. AFINITOR [Suspect]
     Active Substance: EVEROLIMUS
     Dosage: 5 MG, UNK
     Dates: start: 20100710, end: 20100720
  15. MOBIC [Concomitant]
     Active Substance: MELOXICAM
     Dosage: 10 MG, UNK
     Dates: start: 20100522
  16. AFINITOR [Suspect]
     Active Substance: EVEROLIMUS
     Dosage: 05 MG, DAILY
     Route: 048
     Dates: start: 20100816, end: 20101007
  17. ZYLORIC [Concomitant]
     Active Substance: ALLOPURINOL
     Dosage: 100 MG, UNK
     Dates: start: 20100522, end: 20100615
  18. TAKEPRON [Concomitant]
     Active Substance: LANSOPRAZOLE
     Dosage: 30 MG, UNK
     Dates: start: 20100522
  19. LOXONIN [Concomitant]
     Active Substance: LOXOPROFEN SODIUM
     Dosage: 60 MG, UNK
     Route: 048
     Dates: start: 20100522
  20. AFINITOR [Suspect]
     Active Substance: EVEROLIMUS
     Dosage: 10 MG DAILY
     Route: 048
     Dates: start: 20100626, end: 20100709
  21. TECELEUKIN [Concomitant]
     Active Substance: TECELEUKIN
     Indication: METASTATIC RENAL CELL CARCINOMA
     Dosage: 1400000 IU, UNK
     Dates: start: 20050828, end: 20100517
  22. AFINITOR [Suspect]
     Active Substance: EVEROLIMUS
     Dosage: 10 MG DAILY
     Route: 048
     Dates: start: 20100610, end: 20100616
  23. AMOBAN [Concomitant]
     Active Substance: ZOPICLONE
     Dosage: 7.5 MG, UNK
     Dates: start: 20100522
  24. LASIX [Concomitant]
     Active Substance: FUROSEMIDE
     Dosage: 20 MG, UNK
     Route: 048
     Dates: start: 20100927
  25. ZOMETA [Concomitant]
     Active Substance: ZOLEDRONIC ACID
     Dosage: UNK
     Route: 041
     Dates: start: 20100703, end: 20100816
  26. TS 1 [Concomitant]
     Active Substance: GIMERACIL\OTERACIL POTASSIUM\TEGAFUR
     Indication: METASTATIC RENAL CELL CARCINOMA
     Dosage: UNK
     Route: 048
     Dates: start: 20070518, end: 20080413
  27. DECADRON [Concomitant]
     Active Substance: DEXAMETHASONE
     Dosage: 1.65 MG, UNK
     Route: 041
     Dates: start: 20100524, end: 20100526
  28. MAGMITT [Concomitant]
     Active Substance: MAGNESIUM OXIDE
     Dosage: 990 MG, UNK
     Route: 048
     Dates: start: 20100522
  29. TRANSAMIN [Concomitant]
     Active Substance: TRANEXAMIC ACID
     Dosage: UNK
     Route: 048
     Dates: start: 20100626

REACTIONS (8)
  - Chest discomfort [Fatal]
  - Hydrothorax [Unknown]
  - Asthenia [Fatal]
  - Oxygen saturation decreased [Fatal]
  - Lymphocyte count decreased [Not Recovered/Not Resolved]
  - Malignant neoplasm progression [Fatal]
  - Thrombocytopenia [Unknown]
  - Anaemia [Unknown]

NARRATIVE: CASE EVENT DATE: 20100528
